FAERS Safety Report 10210248 (Version 2)
Quarter: 2014Q2

REPORT INFORMATION
  Report Type: Spontaneous
  Country: US (occurrence: US)
  Receive Date: 20140602
  Receipt Date: 20140626
  Transmission Date: 20141212
  Serious: No
  Sender: FDA-Public Use
  Company Number: US-PFIZER INC-2014150683

PATIENT
  Age: 51 Year
  Sex: Female

DRUGS (1)
  1. LYRICA [Suspect]
     Dosage: 100 MG, 3X/DAY
     Route: 048

REACTIONS (1)
  - Pain [Unknown]
